FAERS Safety Report 12343351 (Version 2)
Quarter: 2016Q3

REPORT INFORMATION
  Report Type: Spontaneous
  Country: US (occurrence: US)
  Receive Date: 20160506
  Receipt Date: 20160901
  Transmission Date: 20161109
  Serious: Yes (Hospitalization)
  Sender: FDA-Public Use
  Company Number: US-RELYPSA-RLY2016000474

PATIENT
  Age: 82 Year
  Sex: Female

DRUGS (16)
  1. CLONIDINE HCL [Concomitant]
     Active Substance: CLONIDINE HYDROCHLORIDE
  2. HYDRALAZINE HCL [Concomitant]
     Active Substance: HYDRALAZINE HYDROCHLORIDE
  3. NOVOLOG [Concomitant]
     Active Substance: INSULIN ASPART
  4. PROCRIT [Concomitant]
     Active Substance: ERYTHROPOIETIN
  5. DOXAZOSIN MESYLATE. [Concomitant]
     Active Substance: DOXAZOSIN MESYLATE
  6. LANTUS [Concomitant]
     Active Substance: INSULIN GLARGINE
  7. SERTRALINE HCL [Concomitant]
     Active Substance: SERTRALINE HYDROCHLORIDE
  8. ZOLPIDEM TARTRATE. [Concomitant]
     Active Substance: ZOLPIDEM TARTRATE
  9. DOCUSATE SODIUM. [Concomitant]
     Active Substance: DOCUSATE SODIUM
  10. VELTASSA [Suspect]
     Active Substance: PATIROMER
     Indication: HYPERKALAEMIA
     Dosage: 8.4 G, QD
     Route: 048
     Dates: start: 20160316
  11. FUROSEMIDE. [Concomitant]
     Active Substance: FUROSEMIDE
  12. IRON [Concomitant]
     Active Substance: IRON
  13. SENNA LAXATIVE [Concomitant]
     Active Substance: SENNOSIDES
  14. ATORVASTATIN CALCIUM. [Concomitant]
     Active Substance: ATORVASTATIN CALCIUM
  15. RENVELA [Concomitant]
     Active Substance: SEVELAMER CARBONATE
  16. CALCITRIOL. [Concomitant]
     Active Substance: CALCITRIOL

REACTIONS (1)
  - Hospitalisation [Unknown]

NARRATIVE: CASE EVENT DATE: 201604
